FAERS Safety Report 19714158 (Version 1)
Quarter: 2021Q3

REPORT INFORMATION
  Report Type: Spontaneous
  Country: US (occurrence: US)
  Receive Date: 20210818
  Receipt Date: 20210818
  Transmission Date: 20211014
  Serious: Yes (Death)
  Sender: FDA-Public Use
  Company Number: None

PATIENT
  Age: 89 Year
  Sex: Female
  Weight: 76.5 kg

DRUGS (9)
  1. AMLODIPINE [Concomitant]
     Active Substance: AMLODIPINE BESYLATE
  2. MULTIVITAMIN [Concomitant]
     Active Substance: VITAMINS
  3. VALIUM [Concomitant]
     Active Substance: DIAZEPAM
  4. DEXAMETHASONE. [Suspect]
     Active Substance: DEXAMETHASONE
     Dosage: ?          OTHER FREQUENCY:WEEKLY;?
     Route: 048
  5. VELCADE [Suspect]
     Active Substance: BORTEZOMIB
     Dosage: ?          OTHER FREQUENCY:WEEKLY;?
     Route: 058
  6. IRON [Concomitant]
     Active Substance: IRON
  7. LEVOTHYROXINE. [Concomitant]
     Active Substance: LEVOTHYROXINE
  8. ESCITALOPRAM [Concomitant]
     Active Substance: ESCITALOPRAM OXALATE
  9. VITAMIN D3 [Concomitant]
     Active Substance: CHOLECALCIFEROL

REACTIONS (1)
  - Death [None]

NARRATIVE: CASE EVENT DATE: 20210803
